FAERS Safety Report 21239614 (Version 1)
Quarter: 2022Q3

REPORT INFORMATION
  Report Type: Spontaneous
  Country: US (occurrence: None)
  Receive Date: 20220820
  Receipt Date: 20220820
  Transmission Date: 20221027
  Serious: Yes (Life-Threatening, Disabling)
  Sender: FDA-Public Use
  Company Number: None

PATIENT
  Age: 45 Year
  Sex: Male
  Weight: 92.25 kg

DRUGS (20)
  1. MAGNESIUM CITRATE [Suspect]
     Active Substance: MAGNESIUM CITRATE
     Indication: Constipation
     Dosage: OTHER QUANTITY : 10 OUNCE(S);?FREQUENCY : DAILY;?
     Route: 048
     Dates: start: 20220601, end: 20220602
  2. ZENPEP [Concomitant]
     Active Substance: PANCRELIPASE AMYLASE\PANCRELIPASE LIPASE\PANCRELIPASE PROTEASE
  3. ATORVASTATIN [Concomitant]
  4. PROMETHAZINE ORAL [Concomitant]
  5. BRILINTA [Concomitant]
     Active Substance: TICAGRELOR
  6. PANTOPRAZOLE [Concomitant]
     Active Substance: PANTOPRAZOLE
  7. BUPROPION HUMALOG [Concomitant]
  8. DEVICE\INSULIN NOS [Concomitant]
     Active Substance: DEVICE\INSULIN NOS
  9. DEXCOM G6 [Concomitant]
  10. DRONABINOL [Concomitant]
     Active Substance: DRONABINOL
  11. TRETINOIN [Concomitant]
     Active Substance: TRETINOIN
  12. KETOCONIZOLE 2% [Concomitant]
  13. VITAMIN D NOS [Concomitant]
     Active Substance: VITAMIN D NOS
  14. CYANOCOBALAMIN IM INJECTION [Concomitant]
  15. FLUDROCORTISONE [Concomitant]
     Active Substance: FLUDROCORTISONE
  16. ERYTHROMYCIN [Concomitant]
  17. LACTULOSE [Concomitant]
     Active Substance: LACTULOSE
  18. FAMOTIDINE [Concomitant]
     Active Substance: FAMOTIDINE
  19. ASPIRIN [Concomitant]
     Active Substance: ASPIRIN
  20. COLACE [Concomitant]
     Active Substance: DOCUSATE SODIUM

REACTIONS (1)
  - Bacterial infection [None]

NARRATIVE: CASE EVENT DATE: 20220608
